FAERS Safety Report 6384797-X (Version None)
Quarter: 2009Q4

REPORT INFORMATION
  Report Type: 
  Country: None (occurrence: None)
  Receive Date: 20091001
  Receipt Date: 20090925
  Transmission Date: 20100525
  Serious: Yes (Hospitalization, Other)
  Sender: FDA-Public Use
  Company Number: ES-ROXANE LABORATORIES, INC.-2009-RO-00990RO

PATIENT
  Age: 36 Year
  Sex: Male

DRUGS (10)
  1. LITHIUM CARBONATE [Suspect]
  2. RAMIPRIL [Suspect]
     Indication: RENAL FAILURE
  3. RAMIPRIL [Suspect]
     Indication: PROTEINURIA
  4. D-PENICILLAMINE [Suspect]
     Indication: SYSTEMIC SCLEROSIS
  5. NIFEDIPINE [Suspect]
  6. DEFLAZACORT [Suspect]
  7. OLANZAPINE [Suspect]
  8. METHYLPREDNISOLONE 4MG TAB [Concomitant]
     Indication: MESANGIOPROLIFERATIVE GLOMERULONEPHRITIS
  9. PREDNISONE [Concomitant]
     Indication: MESANGIOPROLIFERATIVE GLOMERULONEPHRITIS
  10. CYCLOPHOSPHAMIDE [Concomitant]
     Indication: MESANGIOPROLIFERATIVE GLOMERULONEPHRITIS

REACTIONS (8)
  - MESANGIOPROLIFERATIVE GLOMERULONEPHRITIS [None]
  - OVERLAP SYNDROME [None]
  - PROTEINURIA [None]
  - RENAL FAILURE [None]
  - RENAL FAILURE CHRONIC [None]
  - SCLERODERMA [None]
  - THERAPEUTIC AGENT TOXICITY [None]
  - VASCULITIS [None]
